FAERS Safety Report 10170787 (Version 1)
Quarter: 2014Q2

REPORT INFORMATION
  Report Type: Spontaneous
  Country: GB (occurrence: GB)
  Receive Date: 20140514
  Receipt Date: 20140514
  Transmission Date: 20141212
  Serious: Yes (Hospitalization, Other)
  Sender: FDA-Public Use
  Company Number: GB-PFIZER INC-2014129064

PATIENT
  Age: 79 Year
  Sex: Female
  Weight: 81 kg

DRUGS (8)
  1. SALAZOPYRIN [Suspect]
     Indication: RHEUMATOID ARTHRITIS
     Dosage: 1 G, 2X/DAY
     Route: 048
  2. ALENDRONIC ACID [Concomitant]
     Dosage: UNK
  3. ATORVASTATIN [Concomitant]
  4. BENDROFLUMETHIAZIDE [Concomitant]
     Dosage: UNK
  5. LEVOTHYROXINE [Concomitant]
  6. OMEPRAZOLE [Concomitant]
  7. PREDNISOLONE [Concomitant]
  8. RAMIPRIL [Concomitant]

REACTIONS (3)
  - Hyponatraemia [Recovered/Resolved]
  - Pollakiuria [Unknown]
  - Confusional state [Unknown]
